FAERS Safety Report 4937474-3 (Version None)
Quarter: 2006Q1

REPORT INFORMATION
  Report Type: 
  Country: None (occurrence: None)
  Receive Date: 20060302
  Receipt Date: 20060216
  Transmission Date: 20060701
  Serious: Yes (Hospitalization)
  Sender: FDA-Public Use
  Company Number: AU200602003630

PATIENT
  Age: 25 Year
  Sex: Female

DRUGS (1)
  1. ZYPREXA [Suspect]
     Indication: PSYCHOTIC DISORDER
     Dosage: 1.25 MG, DAILY (1/D), ORAL
     Route: 048
     Dates: end: 20060201

REACTIONS (1)
  - ARTERIAL THROMBOSIS LIMB [None]
